FAERS Safety Report 25565385 (Version 1)
Quarter: 2025Q3

REPORT INFORMATION
  Report Type: Spontaneous
  Country: EU (occurrence: EU)
  Receive Date: 20250716
  Receipt Date: 20250716
  Transmission Date: 20251021
  Serious: Yes (Life-Threatening)
  Sender: AUROBINDO
  Company Number: EU-LRB-01071514

PATIENT
  Age: 38 Year
  Sex: Female
  Weight: 61.5 kg

DRUGS (1)
  1. TERBINAFINE [Suspect]
     Active Substance: TERBINAFINE
     Indication: Onychomycosis
     Dosage: 250 MILLIGRAM, ONCE A DAY(1 X PER DAY 1 TABLET)
     Route: 048
     Dates: start: 20250225, end: 20250413

REACTIONS (2)
  - Heat stroke [Recovered/Resolved]
  - Hepatic function abnormal [Recovered/Resolved]
